FAERS Safety Report 6239477-8 (Version None)
Quarter: 2009Q2

REPORT INFORMATION
  Report Type: 
  Country: None (occurrence: None)
  Receive Date: 20090622
  Receipt Date: 20090615
  Transmission Date: 20091009
  Serious: Yes (Hospitalization, Other)
  Sender: FDA-Public Use
  Company Number: US-AMGEN-QUU351707

PATIENT
  Sex: Female

DRUGS (14)
  1. ARANESP [Suspect]
     Indication: RENAL FAILURE CHRONIC
  2. PROCRIT [Suspect]
     Indication: RENAL FAILURE CHRONIC
     Route: 065
  3. ASPIRIN [Concomitant]
  4. SYMBICORT [Concomitant]
  5. LOVENOX [Concomitant]
  6. IRON [Concomitant]
  7. HYDRALAZINE HCL [Concomitant]
  8. METOPROLOL SUCCINATE [Concomitant]
  9. OMEPRAZOLE [Concomitant]
  10. PREDNISONE [Concomitant]
  11. DEMADEX [Concomitant]
  12. FORTAZ [Concomitant]
  13. CLINDAMYCIN [Concomitant]
  14. VANCOMYCIN [Concomitant]

REACTIONS (4)
  - FLUID OVERLOAD [None]
  - HOSPITALISATION [None]
  - PRURITUS [None]
  - RASH [None]
